FAERS Safety Report 25286070 (Version 1)
Quarter: 2025Q2

REPORT INFORMATION
  Report Type: Spontaneous
  Country: US (occurrence: US)
  Receive Date: 20250509
  Receipt Date: 20250509
  Transmission Date: 20250716
  Serious: Yes (Hospitalization, Other)
  Sender: AUROBINDO
  Company Number: US-MLMSERVICE-20250422-PI488845-00256-1

PATIENT
  Age: 75 Year
  Sex: Male

DRUGS (1)
  1. PANTOPRAZOLE [Suspect]
     Active Substance: PANTOPRAZOLE
     Indication: Peptic ulcer
     Dosage: UNK UNK, ONCE A DAY
     Route: 065

REACTIONS (2)
  - Small intestinal obstruction [Unknown]
  - Campylobacter infection [Unknown]
